FAERS Safety Report 10540171 (Version 3)
Quarter: 2015Q1

REPORT INFORMATION
  Report Type: Other
  Country: IE (occurrence: IE)
  Receive Date: 20141024
  Receipt Date: 20150112
  Transmission Date: 20150720
  Serious: No
  Sender: FDA-Public Use
  Company Number: IE-SHIRE-IE201407120

PATIENT
  Age: 12 Year
  Sex: Male

DRUGS (5)
  1. RISPERIDONE. [Concomitant]
     Active Substance: RISPERIDONE
     Indication: ATTENTION DEFICIT/HYPERACTIVITY DISORDER
     Dosage: 0.25 MG, 2X/DAY:BID
     Route: 048
     Dates: start: 201212
  2. ELAPRASE [Suspect]
     Active Substance: IDURSULFASE
     Dosage: 18 MG, 1X/2WKS (ALTERNATING WITH 12 MG)
     Route: 041
     Dates: start: 20080821
  3. PARACETAMOL [Concomitant]
     Active Substance: ACETAMINOPHEN
     Indication: PREMEDICATION
     Dosage: AS PER AGE/WEIGHT, 1X/WEEK
     Route: 048
     Dates: start: 20080821
  4. PIRITON [Concomitant]
     Active Substance: CHLORPHENIRAMINE MALEATE
     Indication: PREMEDICATION
     Dosage: AS PER AGE/WEIGHT, 1X/WEEK
     Route: 048
     Dates: start: 20080821
  5. ELAPRASE [Suspect]
     Active Substance: IDURSULFASE
     Indication: MUCOPOLYSACCHARIDOSIS II
     Dosage: 12 MG, 1X/2WKS (ALTERNATING WITH 18 MG)
     Route: 041
     Dates: start: 20080821

REACTIONS (1)
  - Localised infection [Recovering/Resolving]

NARRATIVE: CASE EVENT DATE: 20141121
